FAERS Safety Report 5005986-2 (Version None)
Quarter: 2006Q2

REPORT INFORMATION
  Report Type: 
  Country: None (occurrence: None)
  Receive Date: 20060516
  Receipt Date: 20060501
  Transmission Date: 20061013
  Serious: Yes (Other)
  Sender: FDA-Public Use
  Company Number: A-US2002-00592

PATIENT
  Age: 37 Year
  Sex: Male
  Weight: 147.4 kg

DRUGS (7)
  1. TRACLEER [Suspect]
     Indication: PULMONARY HYPERTENSION
     Dosage: DOSE TAKEN BY SPOUSE, ORAL
     Route: 048
     Dates: start: 19991123
  2. NORVASC [Concomitant]
  3. LASIX [Concomitant]
  4. CLARITIN [Concomitant]
  5. ALBUTEROL [Concomitant]
  6. ATROVENT [Concomitant]
  7. COUMADIN [Concomitant]

REACTIONS (4)
  - MISCARRIAGE OF PARTNER [None]
  - NORMAL NEWBORN [None]
  - PREGNANCY OF PARTNER [None]
  - TRANSMISSION OF DRUG VIA SEMEN [None]
